FAERS Safety Report 9854043 (Version 3)
Quarter: 2014Q1

REPORT INFORMATION
  Report Type: Report from Study
  Country: JP (occurrence: JP)
  Receive Date: 20140129
  Receipt Date: 20140225
  Transmission Date: 20141002
  Serious: No
  Sender: FDA-Public Use
  Company Number: JP-PFIZER INC-2014023586

PATIENT
  Age: 62 Year
  Sex: Male

DRUGS (2)
  1. TRIAZOLAM [Suspect]
     Dosage: 2.5 MG, UNK
     Route: 048
  2. MYONAL [Suspect]
     Dosage: 5000 MG, UNK

REACTIONS (1)
  - Overdose [Unknown]
